FAERS Safety Report 9746958 (Version 1)
Quarter: 2013Q4

REPORT INFORMATION
  Report Type: Spontaneous
  Country: US (occurrence: US)
  Receive Date: 20131211
  Receipt Date: 20131211
  Transmission Date: 20140711
  Serious: Yes (Hospitalization, Other)
  Sender: FDA-Public Use
  Company Number: US-ACTAVIS-2013-22287

PATIENT
  Age: 48 Year
  Sex: Male

DRUGS (7)
  1. VENLAFAXINE (UNKNOWN) [Suspect]
     Indication: PRODUCT USED FOR UNKNOWN INDICATION
     Dosage: 600 MG, DAILY
     Route: 065
  2. VENLAFAXINE (UNKNOWN) [Suspect]
     Dosage: 450 MG, DAILY
  3. BUPROPION HYDROCHLORIDE (WATSON LABORATORIES) [Suspect]
     Indication: DEPRESSION
     Dosage: 300 MG, DAILY
  4. BUPROPION HYDROCHLORIDE (WATSON LABORATORIES) [Suspect]
     Indication: ANXIETY
  5. CLONAZEPAM (AELLC) [Suspect]
     Indication: PRODUCT USED FOR UNKNOWN INDICATION
     Dosage: UNK
     Route: 065
  6. HYDROXYZINE                        /00058402/ [Concomitant]
     Indication: PRODUCT USED FOR UNKNOWN INDICATION
     Dosage: 50 MG, DAILY
     Route: 065
  7. METOPROLOL [Concomitant]
     Indication: PRODUCT USED FOR UNKNOWN INDICATION
     Dosage: 50 MG, BID
     Route: 065

REACTIONS (2)
  - Substance-induced psychotic disorder [Recovered/Resolved]
  - Intentional drug misuse [Recovered/Resolved]
